FAERS Safety Report 14898668 (Version 1)
Quarter: 2018Q2

REPORT INFORMATION
  Report Type: Spontaneous
  Country: BR (occurrence: BR)
  Receive Date: 20180515
  Receipt Date: 20180515
  Transmission Date: 20180711
  Serious: Yes (Other)
  Sender: FDA-Public Use
  Company Number: BR-SA-2017SA178541

PATIENT
  Age: 39 Year
  Sex: Female
  Weight: 75 kg

DRUGS (2)
  1. AAS [Suspect]
     Active Substance: ASPIRIN
     Route: 048
     Dates: start: 20170826, end: 20170919
  2. CLEXANE [Suspect]
     Active Substance: ENOXAPARIN SODIUM
     Indication: THROMBOSIS
     Dosage: SYRINGES DOSE:2 UNIT(S)
     Route: 058
     Dates: start: 20170919

REACTIONS (3)
  - Exposure during pregnancy [Unknown]
  - Abortion [Unknown]
  - Haemorrhage in pregnancy [Recovering/Resolving]

NARRATIVE: CASE EVENT DATE: 20170926
